FAERS Safety Report 23940568 (Version 3)
Quarter: 2024Q3

REPORT INFORMATION
  Report Type: Spontaneous
  Country: US (occurrence: US)
  Receive Date: 20240605
  Receipt Date: 20240725
  Transmission Date: 20241017
  Serious: No
  Sender: AMGEN
  Company Number: US-AMGEN-USASP2024108700

PATIENT
  Age: 36 Year
  Sex: Female

DRUGS (3)
  1. OTEZLA [Suspect]
     Active Substance: APREMILAST
     Indication: Psoriasis
     Dosage: 30 MILLIGRAM, BID
     Route: 048
     Dates: start: 2024
  2. OTEZLA [Suspect]
     Active Substance: APREMILAST
     Dosage: 30 MILLIGRAM, BID
     Route: 048
  3. SERTRALINE [Concomitant]
     Active Substance: SERTRALINE HYDROCHLORIDE
     Dosage: 100 MILLIGRAM

REACTIONS (5)
  - Diarrhoea [Not Recovered/Not Resolved]
  - Psoriasis [Unknown]
  - Therapy interrupted [Unknown]
  - Product dose omission issue [Unknown]
  - Headache [Not Recovered/Not Resolved]

NARRATIVE: CASE EVENT DATE: 20240101
